FAERS Safety Report 25856565 (Version 3)
Quarter: 2025Q4

REPORT INFORMATION
  Report Type: Spontaneous
  Country: EU (occurrence: EU)
  Receive Date: 20250929
  Receipt Date: 20251210
  Transmission Date: 20260117
  Serious: Yes (Other)
  Sender: ARGENX BVBA
  Company Number: EU-ARGENX-2025-ARGX-NL012914

PATIENT

DRUGS (3)
  1. EFGARTIGIMOD ALFA [Suspect]
     Active Substance: EFGARTIGIMOD ALFA
     Indication: Exposure during pregnancy
     Dosage: UNK
     Route: 064
  2. CEFTRIAXONE [Concomitant]
     Active Substance: CEFTRIAXONE
     Indication: Product used for unknown indication
     Dosage: 1000 MG
     Route: 064
     Dates: start: 20250417, end: 20250417
  3. NIFEDIPINE [Concomitant]
     Active Substance: NIFEDIPINE
     Indication: Product used for unknown indication
     Dosage: UNK, 10-10-30
     Route: 064
     Dates: start: 20250417, end: 20250419

REACTIONS (4)
  - Hypotonia neonatal [Recovered/Resolved]
  - Foot deformity [Recovered/Resolved]
  - Blood immunoglobulin G decreased [Recovering/Resolving]
  - Foetal exposure during pregnancy [Recovered/Resolved]

NARRATIVE: CASE EVENT DATE: 20250624
